FAERS Safety Report 11860060 (Version 1)
Quarter: 2015Q4

REPORT INFORMATION
  Report Type: Spontaneous
  Country: US (occurrence: US)
  Receive Date: 20151222
  Receipt Date: 20151222
  Transmission Date: 20160305
  Serious: Yes (Other)
  Sender: FDA-Public Use
  Company Number: US-TEVA-618790USA

PATIENT
  Age: 55 Year
  Sex: Female
  Weight: 59.02 kg

DRUGS (4)
  1. VITAMIN D [Concomitant]
     Active Substance: CHOLECALCIFEROL
  2. VENLAFAXINE [Suspect]
     Active Substance: VENLAFAXINE HYDROCHLORIDE
     Indication: HOT FLUSH
     Dates: start: 2013
  3. FISH OIL [Concomitant]
     Active Substance: FISH OIL
  4. VITAMINS [Concomitant]
     Active Substance: VITAMINS

REACTIONS (5)
  - Product use issue [Unknown]
  - Atrial fibrillation [Not Recovered/Not Resolved]
  - Palpitations [Unknown]
  - Drug prescribing error [Unknown]
  - Tinnitus [Unknown]

NARRATIVE: CASE EVENT DATE: 2015
